FAERS Safety Report 25516922 (Version 1)
Quarter: 2025Q3

REPORT INFORMATION
  Report Type: Spontaneous
  Country: US (occurrence: US)
  Receive Date: 20250704
  Receipt Date: 20250704
  Transmission Date: 20251021
  Serious: No
  Sender: RADIUS PHARM
  Company Number: US-RADIUS HEALTH INC.-US-RADIUS-25046504

PATIENT
  Sex: Female

DRUGS (1)
  1. TYMLOS [Suspect]
     Active Substance: ABALOPARATIDE
     Indication: Osteoporosis
     Dosage: 80 MICROGRAM, QD
     Route: 058

REACTIONS (13)
  - Visual impairment [Unknown]
  - Eye disorder [Unknown]
  - Disorientation [Unknown]
  - Adverse drug reaction [Unknown]
  - Headache [Unknown]
  - Arthralgia [Unknown]
  - Pain in extremity [Unknown]
  - Back pain [Unknown]
  - Amnesia [Unknown]
  - Tachycardia [Unknown]
  - Sleep disorder [Unknown]
  - Vertigo [Unknown]
  - Panic attack [Unknown]
